FAERS Safety Report 23166639 (Version 1)
Quarter: 2023Q4

REPORT INFORMATION
  Report Type: Report from Study
  Country: US (occurrence: US)
  Receive Date: 20231109
  Receipt Date: 20231109
  Transmission Date: 20240109
  Serious: Yes (Other)
  Sender: FDA-Public Use
  Company Number: US-NOVPHSZ-PHEH2019US030059

PATIENT
  Sex: Male
  Weight: 112.11 kg

DRUGS (8)
  1. TREPROSTINIL [Suspect]
     Active Substance: TREPROSTINIL
     Indication: Pulmonary arterial hypertension
     Dosage: 14 NG/KG/MIN, CONTINUOUS
     Route: 042
     Dates: start: 20190709
  2. TREPROSTINIL [Suspect]
     Active Substance: TREPROSTINIL
     Dosage: 30 NG/KG
     Route: 042
  3. TREPROSTINIL [Suspect]
     Active Substance: TREPROSTINIL
     Dosage: 28 NG/KG/MIN, CONTINUOUS
     Route: 042
     Dates: start: 20190709
  4. TREPROSTINIL [Suspect]
     Active Substance: TREPROSTINIL
     Dosage: 24 NG/KG/MIN, CONTINUOUS
     Route: 042
  5. ADEMPAS [Concomitant]
     Active Substance: RIOCIGUAT
     Indication: Product used for unknown indication
     Route: 065
  6. ELIQUIS [Concomitant]
     Active Substance: APIXABAN
     Indication: Product used for unknown indication
     Route: 065
  7. REMODULIN [Concomitant]
     Active Substance: TREPROSTINIL
     Indication: Product used for unknown indication
     Route: 065
  8. REMODULIN [Concomitant]
     Active Substance: TREPROSTINIL
     Indication: Product used for unknown indication
     Route: 065

REACTIONS (10)
  - Weight decreased [Unknown]
  - Injection site rash [Unknown]
  - Injection site haemorrhage [Unknown]
  - Diarrhoea [Recovered/Resolved]
  - Headache [Recovered/Resolved]
  - Nausea [Unknown]
  - Decreased appetite [Unknown]
  - Asthenia [Unknown]
  - Taste disorder [Unknown]
  - Hypotension [Unknown]
